FAERS Safety Report 7469122-5 (Version None)
Quarter: 2011Q2

REPORT INFORMATION
  Report Type: 
  Country: None (occurrence: None)
  Receive Date: 20110510
  Receipt Date: 20110427
  Transmission Date: 20111010
  Serious: Yes (Other)
  Sender: FDA-Public Use
  Company Number: US-ELI_LILLY_AND_COMPANY-US201104008222

PATIENT
  Age: 52 Year
  Sex: Female
  Weight: 62.132 kg

DRUGS (10)
  1. PROZAC [Suspect]
     Indication: DEPRESSION
     Dosage: UNK, UNKNOWN
     Route: 048
  2. ZOLOFT [Concomitant]
     Dosage: UNK, UNKNOWN
  3. LYRICA [Concomitant]
     Indication: FIBROMYALGIA
     Dosage: 75 MG, BID
     Route: 048
  4. LYRICA [Concomitant]
     Dosage: 100 MG, TID
     Route: 048
     Dates: end: 20101101
  5. CYMBALTA [Suspect]
     Indication: DEPRESSION
     Dosage: UNK, UNKNOWN
     Route: 048
  6. SOMA [Concomitant]
     Indication: NECK PAIN
     Dosage: UNK, TID
  7. TYLENOL W/ CODEINE [Concomitant]
     Indication: SPONDYLITIS
     Dosage: UNK, PRN
     Route: 048
  8. ZOLOFT [Concomitant]
     Indication: DEPRESSION
     Dosage: UNK, BID
     Route: 048
     Dates: start: 19770101
  9. EFFEXOR [Concomitant]
     Indication: DEPRESSION
     Dosage: UNK, BID
     Route: 048
  10. LYRICA [Concomitant]
     Dosage: UNK, UNKNOWN

REACTIONS (4)
  - DRUG INEFFECTIVE [None]
  - ACTIVITIES OF DAILY LIVING IMPAIRED [None]
  - DISTURBANCE IN ATTENTION [None]
  - FIBROMYALGIA [None]
